FAERS Safety Report 24004804 (Version 1)
Quarter: 2024Q2

REPORT INFORMATION
  Report Type: Spontaneous
  Country: US (occurrence: None)
  Receive Date: 20240621
  Receipt Date: 20240621
  Transmission Date: 20240716
  Serious: Yes (Hospitalization)
  Sender: FDA-Public Use
  Company Number: None

PATIENT
  Age: 74 Year
  Sex: Female

DRUGS (1)
  1. EVEROLIMUS [Suspect]
     Active Substance: EVEROLIMUS
     Dosage: FREQUENCY : DAILY;?

REACTIONS (6)
  - Decreased appetite [None]
  - Vomiting [None]
  - Dehydration [None]
  - Memory impairment [None]
  - Asthenia [None]
  - Abdominal discomfort [None]
